FAERS Safety Report 6328565-3 (Version None)
Quarter: 2009Q3

REPORT INFORMATION
  Report Type: 
  Country: None (occurrence: None)
  Receive Date: 20090826
  Receipt Date: 20090821
  Transmission Date: 20100115
  Serious: Yes (Other)
  Sender: FDA-Public Use
  Company Number: US-JNJCH-2009021422

PATIENT
  Age: 62 Year
  Sex: Female
  Weight: 67.1 kg

DRUGS (6)
  1. ROGAINE 5% FOAM [Suspect]
     Indication: ALOPECIA
     Dosage: TEXT:HALF CAPFUL 2X PER DAY
     Route: 061
     Dates: start: 20090802, end: 20090806
  2. SYNTHROID [Concomitant]
     Indication: THYROID DISORDER
     Dosage: TEXT:50 MG 3 DAYS 2
     Route: 065
  3. PLAVIX [Concomitant]
     Indication: BLOOD DISORDER
     Dosage: TEXT:1 PER DAY
     Route: 065
  4. MULTI-VITAMINS [Concomitant]
     Indication: VITAMIN SUPPLEMENTATION
     Dosage: TEXT:1 PER DAY
     Route: 065
  5. CALCIUM [Concomitant]
     Indication: MINERAL SUPPLEMENTATION
     Dosage: TEXT:2 PER DAY
     Route: 065
  6. VIACTIV /USA/ [Concomitant]
     Indication: VITAMIN SUPPLEMENTATION
     Dosage: TEXT:1 PER DAY
     Route: 065

REACTIONS (5)
  - BREAST DISORDER [None]
  - EYE MOVEMENT DISORDER [None]
  - EYE PAIN [None]
  - PALPITATIONS [None]
  - WRONG DRUG ADMINISTERED [None]
